FAERS Safety Report 5935467-0 (Version None)
Quarter: 2008Q4

REPORT INFORMATION
  Report Type: 
  Country: None (occurrence: None)
  Receive Date: 20081030
  Receipt Date: 20081001
  Transmission Date: 20090506
  Serious: No
  Sender: FDA-Public Use
  Company Number: US-BAYER-200811720BCC

PATIENT
  Age: 60 Year
  Sex: Female
  Weight: 86 kg

DRUGS (5)
  1. ALEVE (CAPLET) [Suspect]
     Indication: ARTHRALGIA
     Route: 048
     Dates: start: 20080402
  2. TYLENOL (CAPLET) [Concomitant]
  3. METHOTREXATE [Concomitant]
  4. DIOVAN [Concomitant]
  5. FOLIC ACID [Concomitant]

REACTIONS (3)
  - ABDOMINAL DISCOMFORT [None]
  - BURNING SENSATION [None]
  - HYPERCHLORHYDRIA [None]
